FAERS Safety Report 24273214 (Version 1)
Quarter: 2024Q3

REPORT INFORMATION
  Report Type: Report from Study
  Country: GB (occurrence: GB)
  Receive Date: 20240902
  Receipt Date: 20240902
  Transmission Date: 20241016
  Serious: Yes (Death, Other)
  Sender: ROCHE
  Company Number: GB-ROCHE-10000066070

PATIENT

DRUGS (9)
  1. RITUXIMAB [Suspect]
     Active Substance: RITUXIMAB
     Indication: Waldenstrom^s macroglobulinaemia
     Route: 042
  2. PEMBROLIZUMAB [Suspect]
     Active Substance: PEMBROLIZUMAB
     Indication: Waldenstrom^s macroglobulinaemia
     Route: 042
  3. BENDAMUSTINE [Suspect]
     Active Substance: BENDAMUSTINE
     Indication: Waldenstrom^s macroglobulinaemia
     Route: 065
  4. BORTEZOMIB [Suspect]
     Active Substance: BORTEZOMIB
     Indication: Waldenstrom^s macroglobulinaemia
     Route: 065
  5. DEXAMETHASONE [Suspect]
     Active Substance: DEXAMETHASONE
     Indication: Waldenstrom^s macroglobulinaemia
     Route: 065
  6. IXAZOMIB [Suspect]
     Active Substance: IXAZOMIB
     Indication: Waldenstrom^s macroglobulinaemia
     Route: 065
  7. BORTEZOMIB [Suspect]
     Active Substance: BORTEZOMIB
     Indication: Waldenstrom^s macroglobulinaemia
     Route: 065
  8. CYCLOPHOSPHAMIDE [Suspect]
     Active Substance: CYCLOPHOSPHAMIDE
     Indication: Waldenstrom^s macroglobulinaemia
     Route: 065
  9. PIRTOBRUTINIB [Suspect]
     Active Substance: PIRTOBRUTINIB
     Indication: Waldenstrom^s macroglobulinaemia
     Route: 065

REACTIONS (94)
  - Anaemia [Unknown]
  - Atrial fibrillation [Unknown]
  - Neutropenia [Unknown]
  - Infection [Fatal]
  - COVID-19 [Fatal]
  - Lower respiratory tract infection [Unknown]
  - Vaccination complication [Unknown]
  - Infusion related reaction [Unknown]
  - Platelet count decreased [Unknown]
  - White blood cell count decreased [Unknown]
  - Lymphocyte count decreased [Unknown]
  - Neutrophil count decreased [Unknown]
  - Hyponatraemia [Unknown]
  - Cerebrovascular accident [Unknown]
  - Cerebrovascular accident [Unknown]
  - Syncope [Unknown]
  - Dyspnoea [Unknown]
  - Respiratory failure [Unknown]
  - Stridor [Unknown]
  - Rash maculo-papular [Unknown]
  - Folate deficiency [Unknown]
  - Sinus tachycardia [Unknown]
  - Atrioventricular block first degree [Unknown]
  - Palpitations [Unknown]
  - Ventricular arrhythmia [Unknown]
  - Heart failure with preserved ejection fraction [Unknown]
  - Tinnitus [Unknown]
  - Adrenal insufficiency [Unknown]
  - Adrenal insufficiency [Unknown]
  - Vision blurred [Unknown]
  - Haemorrhoids [Unknown]
  - Constipation [Unknown]
  - Diarrhoea [Unknown]
  - Nausea [Unknown]
  - Abdominal pain [Unknown]
  - Dyspepsia [Unknown]
  - Dyspepsia [Unknown]
  - Diarrhoea [Unknown]
  - Mouth ulceration [Unknown]
  - Chills [Unknown]
  - Localised oedema [Unknown]
  - Pyrexia [Unknown]
  - Facial pain [Unknown]
  - Fatigue [Unknown]
  - Fatigue [Unknown]
  - Arthralgia [Unknown]
  - Pain in extremity [Unknown]
  - Lymph gland infection [Unknown]
  - Pneumonia [Unknown]
  - Candida infection [Unknown]
  - Lower respiratory tract infection [Unknown]
  - Blood creatinine increased [Unknown]
  - White blood cell count decreased [Unknown]
  - Blood bicarbonate decreased [Unknown]
  - Aspartate aminotransferase increased [Unknown]
  - Aspartate aminotransferase increased [Unknown]
  - Alanine aminotransferase increased [Unknown]
  - Alanine aminotransferase increased [Unknown]
  - Amylase increased [Unknown]
  - Blood thyroid stimulating hormone increased [Unknown]
  - White blood cell count increased [Unknown]
  - Platelet count increased [Unknown]
  - Neutrophil count increased [Unknown]
  - Hypercalcaemia [Unknown]
  - Hyperuricaemia [Unknown]
  - Hypoalbuminaemia [Unknown]
  - Hyperkalaemia [Unknown]
  - Hypocalcaemia [Unknown]
  - Iron deficiency [Unknown]
  - Pain in extremity [Unknown]
  - Muscle spasms [Unknown]
  - Myalgia [Unknown]
  - Flank pain [Unknown]
  - Back pain [Unknown]
  - Polymyalgia rheumatica [Unknown]
  - Skin neoplasm excision [Unknown]
  - Dizziness [Unknown]
  - Headache [Unknown]
  - Paraesthesia [Unknown]
  - Memory impairment [Unknown]
  - Neuropathy peripheral [Unknown]
  - Sciatica [Unknown]
  - Pollakiuria [Unknown]
  - Dysuria [Unknown]
  - Chronic kidney disease [Unknown]
  - Pleural effusion [Unknown]
  - Cough [Unknown]
  - Dyspnoea [Unknown]
  - Haemoptysis [Unknown]
  - Pruritus [Unknown]
  - Hyperhidrosis [Unknown]
  - Dermatitis acneiform [Unknown]
  - Hypotension [Unknown]
  - Flushing [Unknown]
